FAERS Safety Report 9464425 (Version 2)
Quarter: 2013Q4

REPORT INFORMATION
  Report Type: Spontaneous
  Country: US (occurrence: US)
  Receive Date: 20130819
  Receipt Date: 20131011
  Transmission Date: 20140711
  Serious: Yes (Hospitalization)
  Sender: FDA-Public Use
  Company Number: US-AMGEN-USASP2013057199

PATIENT
  Age: 70 Year
  Sex: Male

DRUGS (5)
  1. PROCRIT [Suspect]
     Indication: ANAEMIA
     Dosage: 10000 UNIT, 3 TIMES/WK
     Route: 065
     Dates: start: 201309
  2. HUMALOG [Concomitant]
     Indication: DIABETES MELLITUS
     Dosage: 10000 UNIT, QHS AM
     Route: 058
     Dates: start: 201309
  3. PRAVASTATIN [Concomitant]
     Indication: BLOOD CHOLESTEROL INCREASED
     Dosage: 10 MG, QHS
     Dates: start: 201309
  4. ONDANSETRAN [Concomitant]
     Indication: NAUSEA
     Dosage: 4 MG, QID PRN
     Dates: start: 201309
  5. ONDANSETRAN [Concomitant]
     Indication: VOMITING

REACTIONS (7)
  - Hospitalisation [Recovered/Resolved]
  - Renal failure acute [Recovering/Resolving]
  - Dehydration [Recovering/Resolving]
  - Hypophagia [Unknown]
  - Dysgeusia [Unknown]
  - Nausea [Unknown]
  - Vomiting [Unknown]
